FAERS Safety Report 10335652 (Version 1)
Quarter: 2014Q3

REPORT INFORMATION
  Report Type: Spontaneous
  Country: US (occurrence: US)
  Receive Date: 20140723
  Receipt Date: 20140723
  Transmission Date: 20150326
  Serious: Yes (Death)
  Sender: FDA-Public Use
  Company Number: US-TEVA-495624USA

PATIENT
  Sex: Male
  Weight: 108.96 kg

DRUGS (4)
  1. ACTIQ [Suspect]
     Active Substance: FENTANYL CITRATE
     Indication: METASTASES TO LIVER
     Route: 048
  2. ACTIQ [Suspect]
     Active Substance: FENTANYL CITRATE
     Indication: LYMPHADENOPATHY
  3. OXYCODONE [Concomitant]
     Active Substance: OXYCODONE
     Indication: PAIN
  4. DURAGESIC [Concomitant]
     Active Substance: FENTANYL
     Indication: PAIN

REACTIONS (1)
  - Death [Fatal]
